FAERS Safety Report 16479632 (Version 2)
Quarter: 2019Q3

REPORT INFORMATION
  Report Type: Report from Study
  Country: US (occurrence: US)
  Receive Date: 20190626
  Receipt Date: 20190709
  Transmission Date: 20191004
  Serious: Yes (Hospitalization)
  Sender: FDA-Public Use
  Company Number: US-GILEAD-2019-0414475

PATIENT
  Age: 34 Year
  Sex: Female
  Weight: 90 kg

DRUGS (22)
  1. CARVEDILOL. [Concomitant]
     Active Substance: CARVEDILOL
  2. DIPHENOXYLATE/ATROPINE [Concomitant]
     Active Substance: ATROPINE\DIPHENOXYLATE
  3. LEVETIRACETAM. [Concomitant]
     Active Substance: LEVETIRACETAM
  4. SOLIFENACIN [Concomitant]
     Active Substance: SOLIFENACIN
  5. CYANOCOBALAMIN (57 CO) [Concomitant]
  6. MULTI VIT [Concomitant]
     Active Substance: VITAMINS
  7. OLANZAPINE. [Concomitant]
     Active Substance: OLANZAPINE
  8. AMBRISENTAN [Suspect]
     Active Substance: AMBRISENTAN
     Indication: PORTOPULMONARY HYPERTENSION
     Dosage: 10 MG, UNK
     Route: 048
     Dates: start: 20071212
  9. AUGMENTIN [Suspect]
     Active Substance: AMOXICILLIN\CLAVULANATE POTASSIUM
     Indication: PRODUCT USED FOR UNKNOWN INDICATION
     Route: 065
  10. CHOLECALCIFEROL [Concomitant]
     Active Substance: CHOLECALCIFEROL
  11. CLONAZEPAM. [Concomitant]
     Active Substance: CLONAZEPAM
  12. PREDNISONE. [Concomitant]
     Active Substance: PREDNISONE
  13. POTASSIUM CHLORIDE. [Concomitant]
     Active Substance: POTASSIUM CHLORIDE
  14. AMBRISENTAN [Suspect]
     Active Substance: AMBRISENTAN
     Dosage: 10 MG, QD
     Route: 048
     Dates: start: 20140206
  15. FUROSEMIDE. [Concomitant]
     Active Substance: FUROSEMIDE
  16. NORETHINDRONE [NORETHISTERONE ACETATE] [Concomitant]
  17. NORTRIPTYLINE [Concomitant]
     Active Substance: NORTRIPTYLINE
  18. SPIRONOLACTONE. [Concomitant]
     Active Substance: SPIRONOLACTONE
  19. ESCITALOPRAM [Concomitant]
     Active Substance: ESCITALOPRAM OXALATE
  20. ORENITRAM [Suspect]
     Active Substance: TREPROSTINIL
     Indication: PULMONARY ARTERIAL HYPERTENSION
     Dosage: 2 MG, Q8H
     Route: 048
     Dates: start: 20140930
  21. CEFALEXIN [Concomitant]
     Active Substance: CEPHALEXIN
  22. FLUTICASONE. [Concomitant]
     Active Substance: FLUTICASONE

REACTIONS (7)
  - Sinusitis [Unknown]
  - Intentional dose omission [Unknown]
  - Diarrhoea [Recovered/Resolved]
  - Malaise [Unknown]
  - Drug hypersensitivity [Recovered/Resolved]
  - Ear infection [Unknown]
  - Gastroenteritis viral [Recovered/Resolved]

NARRATIVE: CASE EVENT DATE: 201906
